FAERS Safety Report 21252418 (Version 2)
Quarter: 2022Q3

REPORT INFORMATION
  Report Type: Spontaneous
  Country: US (occurrence: US)
  Receive Date: 20220825
  Receipt Date: 20220906
  Transmission Date: 20221027
  Serious: Yes (Other)
  Sender: FDA-Public Use
  Company Number: US-ELI_LILLY_AND_COMPANY-US202208012761

PATIENT
  Sex: Male

DRUGS (2)
  1. EMGALITY [Suspect]
     Active Substance: GALCANEZUMAB-GNLM
     Indication: Product used for unknown indication
     Dosage: UNK UNK, UNKNOWN (LOADING DOSE)
     Route: 065
     Dates: start: 202207
  2. EMGALITY [Suspect]
     Active Substance: GALCANEZUMAB-GNLM
     Dosage: 120 MG, UNKNOWN (MAINTENANCE DOSE)
     Route: 065
     Dates: start: 20220817

REACTIONS (6)
  - Loss of consciousness [Unknown]
  - Nausea [Unknown]
  - Gastrointestinal pain [Unknown]
  - Appendix disorder [Unknown]
  - Vomiting [Unknown]
  - Gluten sensitivity [Unknown]

NARRATIVE: CASE EVENT DATE: 20220101
